FAERS Safety Report 8541820 (Version 3)
Quarter: 2012Q4

REPORT INFORMATION
  Report Type: 
  Country: DE (occurrence: DE)
  Receive Date: 20120502
  Receipt Date: 20121025
  Transmission Date: 20130627
  Serious: Yes (Death)
  Sender: FDA-Public Use
  Company Number: DE-ACTELION-A-CH2012-64463

PATIENT
  Age: 69 Year
  Sex: Female
  Weight: 40 kg

DRUGS (1)
  1. TRACLEER [Suspect]
     Indication: DIGITAL ULCER
     Dosage: 62.5 mg, bid
     Route: 048
     Dates: start: 20090120

REACTIONS (3)
  - Cardiac failure [Fatal]
  - Multi-organ failure [Fatal]
  - Renal failure [Fatal]
